FAERS Safety Report 21339900 (Version 1)
Quarter: 2022Q3

REPORT INFORMATION
  Report Type: Spontaneous
  Country: JP (occurrence: JP)
  Receive Date: 20220915
  Receipt Date: 20220915
  Transmission Date: 20221027
  Serious: Yes (Death, Hospitalization, Other)
  Sender: FDA-Public Use
  Company Number: JP-BRISTOL-MYERS SQUIBB COMPANY-2022-101366

PATIENT
  Age: 67 Year
  Sex: Male
  Weight: 51 kg

DRUGS (36)
  1. YERVOY [Suspect]
     Active Substance: IPILIMUMAB
     Indication: Renal neoplasm
     Route: 041
     Dates: start: 20220408, end: 20220408
  2. OPDIVO [Suspect]
     Active Substance: NIVOLUMAB
     Indication: Renal neoplasm
     Route: 041
     Dates: start: 20220408, end: 20220408
  3. ALLOPURINOL [Concomitant]
     Active Substance: ALLOPURINOL
     Indication: Product used for unknown indication
     Route: 048
     Dates: end: 20220430
  4. ETODOLAC [Concomitant]
     Active Substance: ETODOLAC
     Indication: Product used for unknown indication
     Route: 048
     Dates: start: 20220307, end: 20220408
  5. SYMPROIC [Concomitant]
     Active Substance: NALDEMEDINE
     Indication: Product used for unknown indication
     Route: 048
     Dates: start: 20220307, end: 20220414
  6. SYMPROIC [Concomitant]
     Active Substance: NALDEMEDINE
     Route: 065
     Dates: start: 20220422, end: 20220530
  7. NAIXAN [NAPROXEN SODIUM] [Concomitant]
     Indication: Product used for unknown indication
     Route: 048
     Dates: start: 20220404, end: 20220414
  8. PREGABALIN [Concomitant]
     Active Substance: PREGABALIN
     Indication: Product used for unknown indication
     Route: 048
     Dates: start: 20220317, end: 20220414
  9. MAGNESIUM OXIDE [Concomitant]
     Active Substance: MAGNESIUM OXIDE
     Indication: Product used for unknown indication
     Route: 048
     Dates: start: 20220307, end: 20220413
  10. MAGNESIUM OXIDE [Concomitant]
     Active Substance: MAGNESIUM OXIDE
     Route: 065
     Dates: start: 20220421, end: 20220530
  11. RABEPRAZOLE [Concomitant]
     Active Substance: RABEPRAZOLE
     Indication: Product used for unknown indication
     Route: 048
     Dates: end: 20220419
  12. OXYCONTIN [Concomitant]
     Active Substance: OXYCODONE HYDROCHLORIDE
     Indication: Product used for unknown indication
     Route: 048
     Dates: start: 20220307, end: 20220414
  13. OXYCONTIN [Concomitant]
     Active Substance: OXYCODONE HYDROCHLORIDE
     Route: 065
     Dates: start: 20220502, end: 20220526
  14. MIYA-BM [Concomitant]
     Active Substance: CLOSTRIDIUM BUTYRICUM SPORES STRAIN M-55
     Indication: Product used for unknown indication
     Route: 048
     Dates: start: 20220412, end: 20220427
  15. LANSOPRAZOLE [Concomitant]
     Active Substance: LANSOPRAZOLE
     Indication: Product used for unknown indication
     Route: 048
     Dates: start: 20220420, end: 20220530
  16. PREDONINE [Concomitant]
     Active Substance: PREDNISOLONE
     Indication: Product used for unknown indication
     Route: 048
     Dates: start: 20220505, end: 20220523
  17. QUETIAPINE FUMARATE [Concomitant]
     Active Substance: QUETIAPINE FUMARATE
     Indication: Product used for unknown indication
     Route: 048
     Dates: start: 20220529, end: 20220530
  18. SULFAMETHOXAZOLE\TRIMETHOPRIM [Concomitant]
     Active Substance: SULFAMETHOXAZOLE\TRIMETHOPRIM
     Indication: Product used for unknown indication
     Route: 048
     Dates: start: 20220523, end: 20220527
  19. BISOPROLOL [Concomitant]
     Active Substance: BISOPROLOL
     Indication: Product used for unknown indication
     Route: 048
     Dates: start: 20220529, end: 20220530
  20. PICOSULFATE  SODIUM [Concomitant]
     Indication: Product used for unknown indication
     Route: 048
     Dates: start: 20220425
  21. CALONAL [Concomitant]
     Active Substance: ACETAMINOPHEN
     Indication: Product used for unknown indication
     Route: 048
     Dates: end: 20220530
  22. TRAZODONE HYDROCHLORIDE [Concomitant]
     Active Substance: TRAZODONE HYDROCHLORIDE
     Indication: Product used for unknown indication
     Route: 048
     Dates: end: 20220530
  23. OXYCODONE HYDROCHLORIDE [Concomitant]
     Active Substance: OXYCODONE HYDROCHLORIDE
     Indication: Product used for unknown indication
     Route: 048
     Dates: end: 20220410
  24. OXYCODONE HYDROCHLORIDE [Concomitant]
     Active Substance: OXYCODONE HYDROCHLORIDE
     Route: 048
     Dates: start: 20220504, end: 20220525
  25. VITAMEDIN S [Concomitant]
     Indication: Product used for unknown indication
     Route: 065
     Dates: start: 20220409, end: 20220425
  26. VITAMEDIN S [Concomitant]
     Route: 065
     Dates: start: 20220523, end: 20220527
  27. ACETAMINOPHEN [Concomitant]
     Active Substance: ACETAMINOPHEN
     Indication: Product used for unknown indication
     Route: 065
     Dates: start: 20220409, end: 20220414
  28. OXYCODONE [Concomitant]
     Active Substance: OXYCODONE
     Indication: Product used for unknown indication
     Route: 065
     Dates: start: 20220414, end: 20220502
  29. PREDONINE [Concomitant]
     Active Substance: PREDNISOLONE
     Indication: Product used for unknown indication
     Route: 065
     Dates: start: 20220414, end: 20220504
  30. PREDONINE [Concomitant]
     Active Substance: PREDNISOLONE
     Route: 065
     Dates: start: 20220526, end: 20220601
  31. CEFEPIME HYDROCHLORIDE [Concomitant]
     Active Substance: CEFEPIME HYDROCHLORIDE
     Indication: Product used for unknown indication
     Route: 065
     Dates: start: 20220414, end: 20220420
  32. SOLU-MEDROL [Concomitant]
     Active Substance: METHYLPREDNISOLONE SODIUM SUCCINATE
     Indication: Product used for unknown indication
     Route: 065
     Dates: start: 20220523, end: 20220525
  33. CEFTRISONE [CEFTRIAXONE SODIUM;SULBACTAM SODIUM] [Concomitant]
     Indication: Product used for unknown indication
     Route: 065
     Dates: start: 20220523, end: 20220530
  34. HYDROMORPHONE HYDROCHLORIDE [Concomitant]
     Active Substance: HYDROMORPHONE HYDROCHLORIDE
     Indication: Product used for unknown indication
     Route: 065
     Dates: start: 20220523, end: 20220530
  35. PENTAMIDINE [Concomitant]
     Active Substance: PENTAMIDINE
     Indication: Product used for unknown indication
     Route: 065
     Dates: start: 20220527, end: 20220531
  36. MORIN [MORPHINE SULFATE] [Concomitant]
     Indication: Product used for unknown indication
     Route: 065
     Dates: end: 20220531

REACTIONS (1)
  - Immune-mediated lung disease [Fatal]

NARRATIVE: CASE EVENT DATE: 20220414
